FAERS Safety Report 9457244 (Version 1)
Quarter: 2013Q3

REPORT INFORMATION
  Report Type: Spontaneous
  Country: NL (occurrence: None)
  Receive Date: 20130812
  Receipt Date: 20130812
  Transmission Date: 20140515
  Serious: Yes (Death)
  Sender: FDA-Public Use
  Company Number: 2013P1015732

PATIENT
  Age: 58 Year
  Sex: Female

DRUGS (14)
  1. CEFUROXIME [Suspect]
     Indication: RETROPERITONEAL ABSCESS
  2. CIPROFLOXACIN [Suspect]
     Indication: RETROPERITONEAL ABSCESS
  3. METRONIDAZOLE [Suspect]
     Indication: RETROPERITONEAL ABSCESS
  4. PIPERACILLIN/TAZOBACTAM [Suspect]
     Indication: RETROPERITONEAL ABSCESS
  5. AMOXICILLIN [Suspect]
     Indication: RETROPERITONEAL ABSCESS
  6. VANCOMYCIN [Suspect]
     Indication: RETROPERITONEAL ABSCESS
  7. LINEZOLID [Suspect]
     Indication: RETROPERITONEAL ABSCESS
  8. CASPOFUNGIN [Suspect]
  9. SULFAMETOXAZOLE AND TRIMETHOPRIM [Suspect]
     Indication: RETROPERITONEAL ABSCESS
  10. HEPARIN [Suspect]
  11. CLEMASTINE [Concomitant]
  12. HYDROCORTISONE [Concomitant]
  13. PREDNISONE [Concomitant]
  14. UNSPECIFIED VASOPRESSORS [Concomitant]

REACTIONS (17)
  - Pyrexia [None]
  - Rash generalised [None]
  - Hypotension [None]
  - Oliguria [None]
  - Respiratory failure [None]
  - Haemoglobin decreased [None]
  - Haematocrit decreased [None]
  - Aspartate aminotransferase increased [None]
  - Metabolic acidosis [None]
  - Hypoxia [None]
  - Drug reaction with eosinophilia and systemic symptoms [None]
  - Unresponsive to stimuli [None]
  - Brain stem syndrome [None]
  - Cerebral haemorrhage [None]
  - Activated partial thromboplastin time prolonged [None]
  - Prothrombin time prolonged [None]
  - Multi-organ disorder [None]
